FAERS Safety Report 6985139-9 (Version None)
Quarter: 2010Q3

REPORT INFORMATION
  Report Type: 
  Country: None (occurrence: None)
  Receive Date: 20100915
  Receipt Date: 20100906
  Transmission Date: 20110219
  Serious: Yes (Death)
  Sender: FDA-Public Use
  Company Number: ES-SANOFI-AVENTIS-2010SA053611

PATIENT
  Age: 64 Year
  Sex: Female

DRUGS (9)
  1. OXALIPLATIN [Suspect]
     Indication: COLORECTAL CANCER
     Route: 042
     Dates: start: 20100607, end: 20100607
  2. OXALIPLATIN [Suspect]
     Route: 042
     Dates: start: 20100719, end: 20100719
  3. BEVACIZUMAB [Suspect]
     Indication: COLORECTAL CANCER
     Route: 042
     Dates: start: 20100607, end: 20100607
  4. BEVACIZUMAB [Suspect]
     Route: 042
     Dates: start: 20100719, end: 20100719
  5. CAPECITABINE [Suspect]
     Indication: COLORECTAL CANCER
     Route: 048
     Dates: start: 20100608
  6. CAPECITABINE [Suspect]
     Route: 048
     Dates: end: 20100801
  7. PANTOPRAZOLE SODIUM [Concomitant]
     Dates: start: 20100524
  8. IBUPROFEN [Concomitant]
     Dates: start: 20100524
  9. AERO RED [Concomitant]
     Dates: start: 20100524

REACTIONS (1)
  - PULMONARY EMBOLISM [None]
